FAERS Safety Report 20850297 (Version 1)
Quarter: 2022Q2

REPORT INFORMATION
  Report Type: Spontaneous
  Country: US (occurrence: None)
  Receive Date: 20220518
  Receipt Date: 20220518
  Transmission Date: 20220721
  Serious: Yes (Other)
  Sender: FDA-Public Use
  Company Number: None

PATIENT
  Age: 55 Year
  Sex: Female
  Weight: 99.9 kg

DRUGS (1)
  1. NP THYROID [Suspect]
     Active Substance: LEVOTHYROXINE\LIOTHYRONINE
     Indication: Autoimmune thyroiditis
     Dosage: OTHER QUANTITY : 1 TABLET(S);?
     Route: 048

REACTIONS (5)
  - Product substitution issue [None]
  - Tri-iodothyronine decreased [None]
  - Fatigue [None]
  - Muscular weakness [None]
  - Pain [None]

NARRATIVE: CASE EVENT DATE: 20220427
